FAERS Safety Report 7543305-8 (Version None)
Quarter: 2011Q2

REPORT INFORMATION
  Report Type: 
  Country: None (occurrence: None)
  Receive Date: 20110524
  Receipt Date: 20110224
  Transmission Date: 20111010
  Serious: No
  Sender: FDA-Public Use
  Company Number: 024202

PATIENT
  Sex: Female
  Weight: 58 kg

DRUGS (4)
  1. ENTOCORT EC [Concomitant]
  2. XIFAXAN [Concomitant]
  3. ALLEGRA [Concomitant]
  4. CIMZIA [Suspect]
     Indication: CROHN'S DISEASE
     Dosage: 400 MG 1X/28 DAYS SUBCUTANEOUS
     Route: 058
     Dates: start: 20100511

REACTIONS (3)
  - UPPER RESPIRATORY TRACT INFECTION [None]
  - NASOPHARYNGITIS [None]
  - RENAL DISORDER [None]
